FAERS Safety Report 7029696-5 (Version None)
Quarter: 2010Q4

REPORT INFORMATION
  Report Type: 
  Country: None (occurrence: None)
  Receive Date: 20101005
  Receipt Date: 20101005
  Transmission Date: 20110411
  Serious: Yes (Hospitalization)
  Sender: FDA-Public Use
  Company Number: None

PATIENT
  Sex: Male
  Weight: 78.88 kg

DRUGS (2)
  1. CAMPATH [Suspect]
     Indication: RENAL TRANSPLANT
     Dosage: 30MG, QD, IV
     Route: 042
     Dates: start: 20100528
  2. CAMPATH [Suspect]
     Dosage: 30MG, QD, IV
     Route: 042
     Dates: start: 20100601

REACTIONS (2)
  - BLOOD CREATININE INCREASED [None]
  - KIDNEY TRANSPLANT REJECTION [None]
